FAERS Safety Report 12619921 (Version 2)
Quarter: 2016Q3

REPORT INFORMATION
  Report Type: Spontaneous
  Country: US (occurrence: US)
  Receive Date: 20160803
  Receipt Date: 20160929
  Transmission Date: 20161109
  Serious: Yes (Other)
  Sender: FDA-Public Use
  Company Number: US-SAOL THERAPEUTICS-2016SAO00310

PATIENT
  Age: 5 Year
  Sex: Male

DRUGS (1)
  1. LIORESAL [Suspect]
     Active Substance: BACLOFEN
     Indication: MUSCLE SPASTICITY
     Dosage: 96.1 ?G, \DAY
     Route: 037

REACTIONS (6)
  - Central nervous system infection [Unknown]
  - Staphylococcal infection [Unknown]
  - Cerebral ventricle dilatation [Unknown]
  - Hydrocephalus [Unknown]
  - Vomiting [Unknown]
  - Constipation [Unknown]

NARRATIVE: CASE EVENT DATE: 201606
